FAERS Safety Report 6095670-9 (Version None)
Quarter: 2009Q1

REPORT INFORMATION
  Report Type: 
  Country: None (occurrence: None)
  Receive Date: 20090227
  Receipt Date: 20080520
  Transmission Date: 20090719
  Serious: No
  Sender: FDA-Public Use
  Company Number: A0728807A

PATIENT
  Age: 61 Year
  Sex: Female

DRUGS (4)
  1. LAMICTAL [Suspect]
     Dosage: 25MG PER DAY
     Route: 048
     Dates: start: 20080505
  2. CLONAZEPAM [Concomitant]
  3. MIRTAZAPINE [Concomitant]
  4. PROMETHAZINE [Concomitant]

REACTIONS (6)
  - DIARRHOEA [None]
  - FEELING JITTERY [None]
  - HYPERHIDROSIS [None]
  - MUSCLE SPASMS [None]
  - NAUSEA [None]
  - VOMITING [None]
